FAERS Safety Report 7416514-6 (Version None)
Quarter: 2011Q2

REPORT INFORMATION
  Report Type: 
  Country: None (occurrence: None)
  Receive Date: 20110414
  Receipt Date: 20110405
  Transmission Date: 20111010
  Serious: Yes (Death, Hospitalization)
  Sender: FDA-Public Use
  Company Number: US-MPIJNJ-2010-03157

PATIENT
  Sex: Male
  Weight: 94.5 kg

DRUGS (18)
  1. DOXIL [Suspect]
     Indication: MULTIPLE MYELOMA
     Dosage: 30 MG/M2, CYCLIC
     Route: 042
     Dates: start: 20090604, end: 20090604
  2. DEXAMETHASONE [Suspect]
     Indication: MULTIPLE MYELOMA
     Dosage: 20 MG, CYCLIC
     Route: 048
     Dates: start: 20090601, end: 20090612
  3. PREDNISONE [Concomitant]
     Dosage: 40 MG, QD
  4. OXYCODONE [Concomitant]
     Dosage: 5 MG, PRN
  5. ASPIRIN [Concomitant]
     Dosage: 81 MG, QD
  6. FLOMAX [Concomitant]
     Dosage: 0.4 MG, QD
  7. AVELOX [Concomitant]
  8. ACYCLOVIR [Concomitant]
     Dosage: 400 MG, BID
  9. LYRICA [Concomitant]
     Dosage: 50 MG, BID
     Route: 048
  10. OXYGEN [Concomitant]
     Dosage: 2 L, UNK
     Route: 045
  11. OXYCONTIN [Concomitant]
     Dosage: 10 MG, BID
  12. PAXIL [Concomitant]
     Dosage: 40 MG, QD
  13. HYDROCHLOROTHIAZIDE [Concomitant]
     Dosage: 25 MG, QD
  14. VELCADE [Suspect]
     Indication: MULTIPLE MYELOMA
     Dosage: 1.3 MG/M2, CYCLIC
     Route: 042
     Dates: start: 20090601, end: 20090611
  15. CYCLOPHOSPHAMIDE [Suspect]
     Indication: MULTIPLE MYELOMA
     Dosage: 750 MG/M2, CYCLIC
     Route: 042
     Dates: start: 20090601, end: 20090601
  16. COLACE [Concomitant]
     Dosage: 100 MG, BID
  17. PRILOSEC [Concomitant]
     Dosage: 20 MG, QD
  18. ACEON [Concomitant]
     Dosage: 4 MG, QD
     Route: 048

REACTIONS (9)
  - PNEUMONITIS CHEMICAL [None]
  - PNEUMONIA [None]
  - ANAEMIA [None]
  - RESPIRATORY FAILURE [None]
  - HYPOXIA [None]
  - MUSCULAR WEAKNESS [None]
  - TACHYARRHYTHMIA [None]
  - RESPIRATORY TRACT INFECTION FUNGAL [None]
  - DEHYDRATION [None]
